FAERS Safety Report 10266589 (Version 1)
Quarter: 2014Q2

REPORT INFORMATION
  Report Type: Spontaneous
  Country: GB (occurrence: GB)
  Receive Date: 20140629
  Receipt Date: 20140629
  Transmission Date: 20141212
  Serious: Yes (Other)
  Sender: FDA-Public Use
  Company Number: PHHY2014GB076580

PATIENT
  Sex: Female

DRUGS (1)
  1. QUETIAPINE [Suspect]

REACTIONS (2)
  - Sinus arrhythmia [Unknown]
  - Sinus tachycardia [Unknown]
